FAERS Safety Report 6206813-8 (Version None)
Quarter: 2009Q2

REPORT INFORMATION
  Report Type: 
  Country: None (occurrence: None)
  Receive Date: 20090518
  Receipt Date: 20090120
  Transmission Date: 20091009
  Serious: No
  Sender: FDA-Public Use
  Company Number: WAES 0901USA03212

PATIENT
  Sex: 0

DRUGS (2)
  1. JANUVIA [Suspect]
     Indication: DRUG USE FOR UNKNOWN INDICATION
     Dosage: 100 MG/UNK/PO
     Route: 048
  2. ACTOS [Concomitant]

REACTIONS (2)
  - EYELID OEDEMA [None]
  - FATIGUE [None]
